FAERS Safety Report 25444552 (Version 1)
Quarter: 2025Q2

REPORT INFORMATION
  Report Type: Spontaneous
  Country: US (occurrence: US)
  Receive Date: 20250617
  Receipt Date: 20250617
  Transmission Date: 20250716
  Serious: No
  Sender: Kenvue
  Company Number: US-KENVUE-20250602275

PATIENT
  Age: 76 Year
  Sex: Female

DRUGS (8)
  1. IMODIUM [Suspect]
     Active Substance: LOPERAMIDE HYDROCHLORIDE
     Indication: Diarrhoea
     Route: 065
     Dates: start: 202501
  2. IMODIUM [Suspect]
     Active Substance: LOPERAMIDE HYDROCHLORIDE
     Dosage: UNK, ONCE A DAY
     Route: 065
     Dates: start: 2025
  3. TYVASO [Concomitant]
     Active Substance: TREPROSTINIL
     Indication: Pulmonary arterial hypertension
     Dosage: 18 MICROGRAM, (3 BREATHS) FOUR TIME A DAY
     Dates: start: 202501, end: 20250128
  4. TYVASO [Concomitant]
     Active Substance: TREPROSTINIL
     Dosage: 18 MICROGRAM (3 BREATHS) , FOUR TIME A DAY
     Dates: start: 20250131, end: 202502
  5. TYVASO [Concomitant]
     Active Substance: TREPROSTINIL
     Dosage: 24 MICROGRAM (4 BREATHS) , FOUR TIME A DAY
     Dates: start: 202502
  6. OFEV [Concomitant]
     Active Substance: NINTEDANIB
     Indication: Idiopathic pulmonary fibrosis
     Route: 048
     Dates: start: 20250107
  7. OFEV [Concomitant]
     Active Substance: NINTEDANIB
     Route: 048
     Dates: start: 2025
  8. TYLENOL [Concomitant]
     Active Substance: ACETAMINOPHEN
     Indication: Headache
     Route: 065
     Dates: start: 202501

REACTIONS (1)
  - Incorrect dose administered [Unknown]

NARRATIVE: CASE EVENT DATE: 20250101
